FAERS Safety Report 6689776-0 (Version None)
Quarter: 2010Q2

REPORT INFORMATION
  Report Type: 
  Country: None (occurrence: None)
  Receive Date: 20100421
  Receipt Date: 20100409
  Transmission Date: 20101027
  Serious: Yes (Hospitalization, Other)
  Sender: FDA-Public Use
  Company Number: HQWYE309025FEB04

PATIENT
  Sex: Female

DRUGS (2)
  1. PREMARIN [Suspect]
     Indication: OESTROGEN REPLACEMENT THERAPY
     Dosage: UNKNOWN
     Route: 048
     Dates: start: 19760101, end: 20021001
  2. PREMARIN [Suspect]
     Indication: HORMONE REPLACEMENT THERAPY

REACTIONS (12)
  - ALOPECIA [None]
  - ASTHMA [None]
  - CELLS IN URINE [None]
  - DEEP VEIN THROMBOSIS [None]
  - HYPERTENSION [None]
  - PAIN IN EXTREMITY [None]
  - PANIC ATTACK [None]
  - PHLEBITIS [None]
  - PRECANCEROUS SKIN LESION [None]
  - SKIN CANCER [None]
  - SWELLING [None]
  - THROMBOSIS [None]
